FAERS Safety Report 5247259-9 (Version None)
Quarter: 2007Q1

REPORT INFORMATION
  Report Type: 
  Country: None (occurrence: None)
  Receive Date: 20070227
  Receipt Date: 20070212
  Transmission Date: 20070707
  Serious: Yes (Other)
  Sender: FDA-Public Use
  Company Number: PHRM2007FR00711

PATIENT
  Age: 47 Year
  Sex: Female

DRUGS (3)
  1. ESTROGEL [Concomitant]
     Route: 061
  2. ZOPICLONE [Concomitant]
  3. LAMISIL [Suspect]
     Indication: NAIL TINEA
     Dosage: 250 MG, ONCE/SINGLE
     Route: 048
     Dates: start: 20070129, end: 20070130

REACTIONS (5)
  - HEADACHE [None]
  - MENINGISM [None]
  - MUSCULOSKELETAL STIFFNESS [None]
  - NAUSEA [None]
  - PHOTOPHOBIA [None]
